FAERS Safety Report 7669851-4 (Version None)
Quarter: 2011Q3

REPORT INFORMATION
  Report Type: 
  Country: None (occurrence: None)
  Receive Date: 20110808
  Receipt Date: 20110728
  Transmission Date: 20111222
  Serious: Yes (Other)
  Sender: FDA-Public Use
  Company Number: BR-ASTRAZENECA-2011SE45492

PATIENT
  Age: 82 Year
  Sex: Female
  Weight: 72 kg

DRUGS (4)
  1. HYGROTON [Concomitant]
     Indication: HYPERTENSION
     Route: 048
     Dates: start: 20000101
  2. ZESTRIL [Suspect]
     Route: 048
     Dates: start: 20110501
  3. ZESTRIL [Suspect]
     Indication: HYPERTENSION
     Route: 048
     Dates: start: 20000101, end: 20110501
  4. AMITRIPTYLINE HCL [Concomitant]
     Indication: DEPRESSION
     Route: 048
     Dates: start: 19900101

REACTIONS (3)
  - DRUG INEFFECTIVE [None]
  - BLOOD PRESSURE INADEQUATELY CONTROLLED [None]
  - OFF LABEL USE [None]
